FAERS Safety Report 7558089-7 (Version None)
Quarter: 2011Q2

REPORT INFORMATION
  Report Type: 
  Country: None (occurrence: None)
  Receive Date: 20110620
  Receipt Date: 20110608
  Transmission Date: 20111010
  Serious: Yes (Hospitalization)
  Sender: FDA-Public Use
  Company Number: JP-ASTRAZENECA-2011SE31461

PATIENT
  Age: 9451 Day
  Sex: Female

DRUGS (14)
  1. SEROQUEL [Suspect]
     Route: 048
     Dates: end: 20110516
  2. DORAL [Suspect]
     Indication: INSOMNIA
     Route: 048
     Dates: start: 20110516
  3. NITRAZEPAM [Suspect]
     Route: 048
     Dates: start: 20110517, end: 20110517
  4. ZOLPIDEM [Suspect]
     Indication: INSOMNIA
     Route: 048
     Dates: start: 20110517, end: 20110517
  5. PL GRAN. [Suspect]
     Indication: NASOPHARYNGITIS
     Route: 048
     Dates: start: 20110516
  6. PL GRAN. [Suspect]
     Route: 048
     Dates: start: 20110517, end: 20110517
  7. SEROQUEL [Suspect]
     Route: 048
     Dates: start: 20110517, end: 20110517
  8. NITRAZEPAM [Suspect]
     Indication: INSOMNIA
     Route: 048
     Dates: start: 20110516
  9. DORAL [Suspect]
     Route: 048
     Dates: start: 20110517, end: 20110517
  10. PROMETHAZINE HCL [Suspect]
     Indication: INSOMNIA
     Route: 048
     Dates: end: 20110516
  11. PROMETHAZINE HCL [Suspect]
     Route: 048
     Dates: start: 20110517, end: 20110517
  12. PURSENIDE [Suspect]
     Indication: CONSTIPATION
     Route: 048
     Dates: end: 20110516
  13. SEROQUEL [Suspect]
     Indication: SCHIZOPHRENIA
     Route: 048
     Dates: start: 20110501, end: 20110501
  14. PURSENIDE [Suspect]
     Route: 048
     Dates: start: 20110517, end: 20110517

REACTIONS (2)
  - PNEUMONIA [None]
  - MULTIPLE DRUG OVERDOSE INTENTIONAL [None]
